FAERS Safety Report 21872249 (Version 4)
Quarter: 2023Q1

REPORT INFORMATION
  Report Type: Spontaneous
  Country: US (occurrence: US)
  Receive Date: 20230117
  Receipt Date: 20230217
  Transmission Date: 20230418
  Serious: No
  Sender: FDA-Public Use
  Company Number: US-PFIZER INC-202300012663

PATIENT
  Age: 20 Year
  Sex: Female
  Weight: 56.236 kg

DRUGS (1)
  1. MEDROXYPROGESTERONE ACETATE [Suspect]
     Active Substance: MEDROXYPROGESTERONE ACETATE
     Indication: Contraception
     Dosage: 150 MG (DAILY DOSE WITH UNITS: 150MG FREQUENCY: 11-13 WKS)
     Route: 030
     Dates: start: 20230109

REACTIONS (1)
  - Device leakage [Unknown]
